FAERS Safety Report 5362316-4 (Version None)
Quarter: 2007Q2

REPORT INFORMATION
  Report Type: 
  Country: None (occurrence: None)
  Receive Date: 20070619
  Receipt Date: 20070612
  Transmission Date: 20071010
  Serious: Yes (Death)
  Sender: FDA-Public Use
  Company Number: B0474966A

PATIENT
  Age: 43 Year
  Sex: Male

DRUGS (4)
  1. FLOLAN [Suspect]
     Indication: PULMONARY HYPERTENSION
     Route: 065
     Dates: start: 20070505, end: 20070601
  2. ANTIRETROVIRAL MEDICATIONS [Concomitant]
  3. FUROSEMIDE [Concomitant]
  4. ALDACTONE [Concomitant]

REACTIONS (7)
  - BACK PAIN [None]
  - BRADYCARDIA [None]
  - DEATH [None]
  - DISCOMFORT [None]
  - HYPOTENSION [None]
  - RESTLESSNESS [None]
  - SUFFOCATION FEELING [None]
